FAERS Safety Report 25894074 (Version 2)
Quarter: 2025Q4

REPORT INFORMATION
  Report Type: Report from Study
  Country: EU (occurrence: EU)
  Receive Date: 20251008
  Receipt Date: 20251112
  Transmission Date: 20260118
  Serious: Yes (Other)
  Sender: ROCHE
  Company Number: EU-ROCHE-10000402358

PATIENT
  Age: 61 Year
  Sex: Female

DRUGS (2)
  1. HERCEPTIN [Suspect]
     Active Substance: TRASTUZUMAB
     Indication: HER2 positive breast cancer
     Route: 030
     Dates: start: 20250420
  2. HERCEPTIN [Suspect]
     Active Substance: TRASTUZUMAB
     Dosage: STRENGTH: 600 MG / 5 ML
     Route: 058
     Dates: start: 2025

REACTIONS (2)
  - Off label use [Unknown]
  - Cardiotoxicity [Unknown]
